FAERS Safety Report 11100725 (Version 5)
Quarter: 2015Q3

REPORT INFORMATION
  Report Type: Spontaneous
  Country: US (occurrence: US)
  Receive Date: 20150508
  Receipt Date: 20150810
  Transmission Date: 20151125
  Serious: Yes (Hospitalization)
  Sender: FDA-Public Use
  Company Number: US-UNITED THERAPEUTICS-UNT-2015-005247

PATIENT
  Age: 76 Year
  Sex: Female
  Weight: 69.89 kg

DRUGS (5)
  1. TYVASO [Suspect]
     Active Substance: TREPROSTINIL
     Indication: PULMONARY ARTERIAL HYPERTENSION
     Dosage: 36-72 ?G, QID
     Dates: start: 20130605
  2. OPSUMIT [Concomitant]
     Active Substance: MACITENTAN
     Indication: PRODUCT USED FOR UNKNOWN INDICATION
  3. REVATIO [Concomitant]
     Active Substance: SILDENAFIL CITRATE
     Indication: PRODUCT USED FOR UNKNOWN INDICATION
  4. TYVASO [Suspect]
     Active Substance: TREPROSTINIL
     Dosage: 36-72 ?G, QID
     Dates: start: 20140731
  5. TYVASO [Suspect]
     Active Substance: TREPROSTINIL
     Dosage: 36-72 ?G, QID

REACTIONS (6)
  - Fluid retention [Unknown]
  - Loss of consciousness [Unknown]
  - Dyspnoea [Unknown]
  - Weight increased [Unknown]
  - Sinus congestion [Unknown]
  - Ear discomfort [Unknown]

NARRATIVE: CASE EVENT DATE: 2015
